APPROVED DRUG PRODUCT: METROLOTION
Active Ingredient: METRONIDAZOLE
Strength: 0.75%
Dosage Form/Route: LOTION;TOPICAL
Application: N020901 | Product #001 | TE Code: AB
Applicant: GALDERMA LABORATORIES LP
Approved: Nov 24, 1998 | RLD: Yes | RS: Yes | Type: RX